FAERS Safety Report 5704498-8 (Version None)
Quarter: 2008Q2

REPORT INFORMATION
  Report Type: 
  Country: None (occurrence: None)
  Receive Date: 20080411
  Receipt Date: 20080411
  Transmission Date: 20081010
  Serious: Yes (Death, Life-Threatening, Hospitalization)
  Sender: FDA-Public Use
  Company Number: None

PATIENT
  Age: 23 Year
  Sex: Male
  Weight: 65.3 kg

DRUGS (2)
  1. RIFAMPIN [Suspect]
     Indication: TUBERCULOSIS
     Dosage: PO
     Route: 048
  2. ISONIAZID [Suspect]
     Dosage: PO
     Route: 048

REACTIONS (2)
  - LIVER FUNCTION TEST ABNORMAL [None]
  - TUBERCULOSIS [None]
